FAERS Safety Report 5620037-4 (Version None)
Quarter: 2008Q1

REPORT INFORMATION
  Report Type: 
  Country: None (occurrence: None)
  Receive Date: 20080208
  Receipt Date: 20080201
  Transmission Date: 20080703
  Serious: Yes (Hospitalization)
  Sender: FDA-Public Use
  Company Number: US-JNJFOC-20041204262

PATIENT
  Sex: Male

DRUGS (53)
  1. TMC114 [Suspect]
     Route: 048
     Dates: start: 20040301, end: 20040506
  2. TMC114 [Suspect]
     Indication: HIV INFECTION
     Route: 048
     Dates: start: 20040301, end: 20040506
  3. RITONAVIR [Suspect]
     Indication: HIV INFECTION
     Route: 048
     Dates: start: 20040301, end: 20040506
  4. TENOFOVIR DISOPROXIL FUMARATE [Suspect]
     Indication: HIV INFECTION
     Route: 048
     Dates: start: 20040428, end: 20040506
  5. TRIMETHOPRIM [Suspect]
     Indication: INFECTION
     Route: 065
  6. LAMIVUDINE [Concomitant]
     Indication: HIV INFECTION
     Route: 048
     Dates: start: 20031030, end: 20040506
  7. DIDANOSINE [Concomitant]
     Indication: HIV INFECTION
     Route: 048
     Dates: start: 20040311, end: 20040427
  8. LOPERAMIDE HYDROCHLORIDE [Concomitant]
     Route: 048
  9. LOPERAMIDE HYDROCHLORIDE [Concomitant]
     Indication: DIARRHOEA
     Dosage: STARTED PRE-TRIAL
     Route: 048
  10. OXYCODONE HYDROCHLORIDE [Concomitant]
     Indication: NEUROPATHY PERIPHERAL
     Route: 048
  11. OXYCODONE HYDROCHLORIDE [Concomitant]
     Indication: PAIN
     Dosage: STARTED PRE-TRIAL, FREQUENCY 3 QAM, 2 QPM
     Route: 048
  12. CLONAZEPAM [Concomitant]
     Indication: INSOMNIA
     Dosage: STARTED PRE-TRIAL
     Route: 048
  13. GABAPENTIN [Concomitant]
     Route: 048
  14. GABAPENTIN [Concomitant]
     Route: 048
  15. GABAPENTIN [Concomitant]
     Route: 048
  16. GABAPENTIN [Concomitant]
     Route: 048
  17. GABAPENTIN [Concomitant]
     Route: 048
  18. GABAPENTIN [Concomitant]
     Indication: NEUROPATHY PERIPHERAL
     Dosage: STARTED PRE-TRIAL
     Route: 048
  19. TESTOSTERONE [Concomitant]
     Indication: ANDROGEN DEFICIENCY
     Dosage: STARTED PRE-TRIAL, 2 UNIT PACKETS
     Route: 061
  20. FILGRASTIM [Concomitant]
     Route: 058
  21. FILGRASTIM [Concomitant]
     Indication: PANCYTOPENIA
     Dosage: STARTED PRE-TRIAL
     Route: 058
  22. VALGANCICLOVIR HCL [Concomitant]
     Route: 048
  23. VALGANCICLOVIR HCL [Concomitant]
     Indication: ANTIVIRAL PROPHYLAXIS
     Dosage: STARTED PRE-TRIAL
     Route: 048
  24. SEPTRA [Concomitant]
     Indication: ANTIFUNGAL PROPHYLAXIS
     Dosage: STARTED PRE-TRIAL
     Route: 048
  25. AZITHROMYCIN [Concomitant]
     Route: 048
  26. AZITHROMYCIN [Concomitant]
     Indication: PROPHYLAXIS
     Dosage: STARTED PRE-TRIAL
     Route: 048
  27. VITAMIN B-12 [Concomitant]
     Indication: VITAMIN B12 DEFICIENCY
     Dosage: STARTED PRE-TRIAL
     Route: 030
  28. VITAMIN CAP [Concomitant]
     Indication: MEDICAL DIET
     Dosage: STARTED PRE-TRIAL
     Route: 048
  29. LOMOTIL [Concomitant]
     Route: 048
  30. LOMOTIL [Concomitant]
     Indication: DIARRHOEA
     Dosage: STARTED PRE-TRIAL
     Route: 048
  31. PSYLLIUM HYDROPHILIC MUCILLOID [Concomitant]
     Dosage: 1 TABLESPOON DAILY
     Route: 048
  32. PSYLLIUM HYDROPHILIC MUCILLOID [Concomitant]
     Indication: DIARRHOEA
     Dosage: STARTED PRE-TRIAL, 1 TABLESPOON DAILY
     Route: 048
  33. CLARITHROMYCIN [Concomitant]
     Route: 048
  34. CLARITHROMYCIN [Concomitant]
     Indication: MYCOBACTERIA TEST
     Route: 048
  35. ETHAMBUTOL DIHYDROCHLORIDE [Concomitant]
     Route: 048
  36. ETHAMBUTOL DIHYDROCHLORIDE [Concomitant]
     Indication: MYCOBACTERIA TEST
     Route: 048
  37. PANCRELIPASE [Concomitant]
     Indication: DIARRHOEA
     Dosage: TAKE WITH MEALS
     Route: 048
  38. HYPERALIMENTATION WITH LIPIDS [Concomitant]
     Route: 042
  39. HYPERALIMENTATION WITH LIPIDS [Concomitant]
     Indication: CACHEXIA
     Route: 042
  40. HYPERALIMENTATION WITH LIPIDS [Concomitant]
     Indication: WEIGHT DECREASED
     Route: 042
  41. ZOLPIDEM TARTRATE [Concomitant]
     Indication: INSOMNIA
     Route: 048
  42. EPOETIN ALFA [Concomitant]
     Route: 058
  43. EPOETIN ALFA [Concomitant]
     Indication: PANCYTOPENIA
     Route: 058
  44. OCTREOTIDE ACETATE [Concomitant]
     Route: 058
  45. OCTREOTIDE ACETATE [Concomitant]
     Indication: DIARRHOEA
     Route: 058
  46. VORICONAZOLE [Concomitant]
     Indication: PROPHYLAXIS
     Route: 048
  47. SERTRALINE HYDROCHLORIDE [Concomitant]
     Indication: DEPRESSION
     Route: 048
     Dates: start: 20040405, end: 20040514
  48. DESONIDE [Concomitant]
     Route: 061
  49. DESONIDE [Concomitant]
     Indication: DIARRHOEA
     Route: 061
  50. OXANDROLONE [Concomitant]
     Indication: CACHEXIA
     Route: 048
  51. ATOVAQUONE [Concomitant]
     Indication: ANTIFUNGAL PROPHYLAXIS
     Dosage: 1 TEASPOON, 2 IN 1 DAY
     Route: 048
  52. LORAZEPAM [Concomitant]
     Indication: MUSCLE CONTRACTIONS INVOLUNTARY
     Route: 042
     Dates: start: 20040510, end: 20040521
  53. LORAZEPAM [Concomitant]
     Indication: MYOCLONUS
     Route: 042
     Dates: start: 20040510, end: 20040521

REACTIONS (2)
  - METABOLIC ACIDOSIS [None]
  - RENAL FAILURE [None]
